FAERS Safety Report 13346889 (Version 1)
Quarter: 2017Q1

REPORT INFORMATION
  Report Type: Spontaneous
  Country: US (occurrence: US)
  Receive Date: 20170317
  Receipt Date: 20170317
  Transmission Date: 20170428
  Serious: No
  Sender: FDA-Public Use
  Company Number: US-PERRIGO-16US017357

PATIENT
  Age: 62 Year
  Sex: Male
  Weight: 63.49 kg

DRUGS (1)
  1. NICOTINE POLACRILEX [Suspect]
     Active Substance: NICOTINE
     Indication: PRODUCT USED FOR UNKNOWN INDICATION
     Dosage: 2 MG, SINGLE
     Route: 002
     Dates: start: 20160610, end: 20160610

REACTIONS (4)
  - Tongue discomfort [Not Recovered/Not Resolved]
  - Dry mouth [Recovered/Resolved]
  - Oral discomfort [Recovered/Resolved]
  - Wrong technique in product usage process [Recovered/Resolved]

NARRATIVE: CASE EVENT DATE: 20160610
